FAERS Safety Report 7378607-1 (Version None)
Quarter: 2011Q1

REPORT INFORMATION
  Report Type: 
  Country: None (occurrence: None)
  Receive Date: 20110323
  Receipt Date: 20110323
  Transmission Date: 20110831
  Serious: Yes (Other)
  Sender: FDA-Public Use
  Company Number: None

PATIENT
  Age: 66 Year
  Sex: Female
  Weight: 86.1834 kg

DRUGS (2)
  1. CYMBALTA [Suspect]
     Indication: FIBROMYALGIA
     Dosage: 30 MG 1 AT BEDTIME PO
     Route: 048
     Dates: start: 20110318, end: 20110321
  2. CYMBALTA [Suspect]
     Indication: NERVOUS SYSTEM DISORDER
     Dosage: 30 MG 1 AT BEDTIME PO
     Route: 048
     Dates: start: 20110318, end: 20110321

REACTIONS (3)
  - GASTROINTESTINAL MOTILITY DISORDER [None]
  - HYPERSOMNIA [None]
  - URINE FLOW DECREASED [None]
